FAERS Safety Report 15523403 (Version 1)
Quarter: 2018Q4

REPORT INFORMATION
  Report Type: Spontaneous
  Country: US (occurrence: US)
  Receive Date: 20181018
  Receipt Date: 20181018
  Transmission Date: 20190205
  Serious: Yes (Hospitalization, Other)
  Sender: FDA-Public Use
  Company Number: US-SUN PHARMACEUTICAL INDUSTRIES LTD-2018US-187993

PATIENT
  Age: 65 Year
  Sex: Female

DRUGS (1)
  1. PREDNISONE. [Suspect]
     Active Substance: PREDNISONE
     Indication: TEMPORAL ARTERITIS
     Dosage: 60 MG, DAILY
     Route: 065

REACTIONS (8)
  - Insomnia [Unknown]
  - Depression [Unknown]
  - Suicide attempt [Unknown]
  - Anxiety [Unknown]
  - Intentional overdose [Unknown]
  - Carbon monoxide poisoning [Unknown]
  - Rash [Recovered/Resolved]
  - Varicella zoster virus infection [Recovered/Resolved]
